FAERS Safety Report 6681466-3 (Version None)
Quarter: 2010Q2

REPORT INFORMATION
  Report Type: 
  Country: None (occurrence: None)
  Receive Date: 20100414
  Receipt Date: 20100403
  Transmission Date: 20101027
  Serious: Yes (Hospitalization)
  Sender: FDA-Public Use
  Company Number: NSADSS2003006053

PATIENT
  Age: 77 Year
  Sex: Male
  Weight: 68.04 kg

DRUGS (3)
  1. LEVAQUIN [Suspect]
     Indication: DIARRHOEA
     Route: 048
     Dates: start: 20030201, end: 20030203
  2. LOPRESSOR [Concomitant]
     Route: 065
  3. FLAGYL [Concomitant]
     Route: 065
     Dates: start: 20030128

REACTIONS (1)
  - DEAFNESS BILATERAL [None]
